FAERS Safety Report 10695605 (Version 2)
Quarter: 2015Q1

REPORT INFORMATION
  Report Type: Spontaneous
  Country: CN (occurrence: CN)
  Receive Date: 20150107
  Receipt Date: 20150115
  Transmission Date: 20150721
  Serious: Yes (Death, Other)
  Sender: FDA-Public Use
  Company Number: CN-PFIZER INC-2015003907

PATIENT
  Age: 56 Year
  Sex: Male

DRUGS (2)
  1. CELEBREX [Suspect]
     Active Substance: CELECOXIB
     Dosage: 3 CAPSULES
     Route: 048
     Dates: start: 20150106, end: 20150106
  2. CELEBREX [Suspect]
     Active Substance: CELECOXIB
     Indication: INFLAMMATION
     Dosage: 1 CAPSULE ONCE DAILY
     Route: 048
     Dates: start: 20150105

REACTIONS (7)
  - Extra dose administered [Unknown]
  - Mania [Unknown]
  - Cerebral haemorrhage [Fatal]
  - Depressed level of consciousness [Unknown]
  - Retching [Unknown]
  - Amnesia [Unknown]
  - Gastric haemorrhage [Unknown]

NARRATIVE: CASE EVENT DATE: 20150106
